FAERS Safety Report 23039735 (Version 1)
Quarter: 2023Q4

REPORT INFORMATION
  Report Type: Spontaneous
  Country: CN (occurrence: CN)
  Receive Date: 20231006
  Receipt Date: 20231006
  Transmission Date: 20240109
  Serious: Yes (Other)
  Sender: FDA-Public Use
  Company Number: CN-JNJFOC-20230970442

PATIENT
  Sex: Male

DRUGS (1)
  1. MOTRIN INFANTS [Suspect]
     Active Substance: IBUPROFEN
     Indication: Accidental exposure to product
     Route: 048
     Dates: start: 20230927

REACTIONS (3)
  - Accidental exposure to product by child [Unknown]
  - Hyperhidrosis [Unknown]
  - Appetite disorder [Unknown]

NARRATIVE: CASE EVENT DATE: 20230101
